FAERS Safety Report 14826250 (Version 1)
Quarter: 2018Q2

REPORT INFORMATION
  Report Type: Spontaneous
  Country: US (occurrence: US)
  Receive Date: 20180403
  Receipt Date: 20180403
  Transmission Date: 20180711
  Serious: Yes (Other)
  Sender: FDA-Public Use
  Company Number: None

PATIENT
  Sex: Female

DRUGS (7)
  1. SEROTONIN SUPPLEMENT [Concomitant]
  2. PRISTIQ EXTENDED-RELEASE [Suspect]
     Active Substance: DESVENLAFAXINE SUCCINATE
     Dates: start: 20171001, end: 20171001
  3. CBD OIL [Concomitant]
     Active Substance: CANNABIDIOL
  4. MAGNESIUM [Concomitant]
     Active Substance: MAGNESIUM
  5. VITAMINS [Concomitant]
     Active Substance: VITAMINS
  6. VENLAFAXINE [Suspect]
     Active Substance: VENLAFAXINE HYDROCHLORIDE
     Dates: start: 20171002, end: 20171009
  7. OTHER HERBALS [Concomitant]

REACTIONS (17)
  - Weight decreased [None]
  - Fatigue [None]
  - Suicidal ideation [None]
  - Nightmare [None]
  - Sleep apnoea syndrome [None]
  - Arrhythmia [None]
  - Anxiety [None]
  - Muscle spasms [None]
  - Withdrawal syndrome [None]
  - Panic reaction [None]
  - Decreased appetite [None]
  - Myalgia [None]
  - Visual impairment [None]
  - Mental status changes [None]
  - Hypoaesthesia [None]
  - Skin lesion [None]
  - Diarrhoea [None]

NARRATIVE: CASE EVENT DATE: 20171001
